FAERS Safety Report 8295905-8 (Version None)
Quarter: 2012Q2

REPORT INFORMATION
  Report Type: 
  Country: None (occurrence: None)
  Receive Date: 20120418
  Receipt Date: 20120412
  Transmission Date: 20120825
  Serious: Yes (Death, Other)
  Sender: FDA-Public Use
  Company Number: CN-PFIZER INC-2012090807

PATIENT
  Age: 75 Year
  Sex: Male

DRUGS (4)
  1. ALPROSTADIL [Concomitant]
  2. TRAMADOL [Concomitant]
  3. CLAFORAN [Concomitant]
  4. CELEBREX [Suspect]
     Indication: GOUT
     Dosage: 400 MG, UNK
     Route: 048
     Dates: start: 20120406

REACTIONS (2)
  - FALL [None]
  - DEATH [None]
